FAERS Safety Report 4362695-0 (Version None)
Quarter: 2004Q2

REPORT INFORMATION
  Report Type: 
  Country: None (occurrence: None)
  Receive Date: 20040518
  Receipt Date: 20040505
  Transmission Date: 20050107
  Serious: Yes (Hospitalization)
  Sender: FDA-Public Use
  Company Number: 002#4#2004-00111

PATIENT
  Age: 61 Year
  Sex: Female

DRUGS (5)
  1. REGLAN [Suspect]
     Dosage: ORAL
     Route: 048
     Dates: start: 20031230, end: 20031230
  2. LEVOTHYROXINE SODIUM [Concomitant]
  3. ATORVASTATIN CALCIUM [Concomitant]
  4. CALCIUM [Concomitant]
  5. GLUCOSAMINE CHONDROITIN [Concomitant]

REACTIONS (6)
  - BLOOD GLUCOSE INCREASED [None]
  - BLOOD PRESSURE DIASTOLIC DECREASED [None]
  - DILATATION ATRIAL [None]
  - MEDICATION ERROR [None]
  - MONOCYTE PERCENTAGE INCREASED [None]
  - SYNCOPE [None]
